FAERS Safety Report 9313971 (Version 2)
Quarter: 2013Q3

REPORT INFORMATION
  Report Type: Spontaneous
  Country: JP (occurrence: JP)
  Receive Date: 20130529
  Receipt Date: 20130704
  Transmission Date: 20140515
  Serious: Yes (Hospitalization, Other)
  Sender: FDA-Public Use
  Company Number: JP-009507513-1305JPN014158

PATIENT
  Age: 45 Year
  Sex: Male

DRUGS (2)
  1. ISENTRESS TABLETS 400MG [Suspect]
     Indication: HIV INFECTION
     Dosage: 400 MG, BID
     Route: 048
     Dates: start: 2010
  2. TRUVADA [Suspect]
     Indication: HIV INFECTION
     Dosage: 1 DF, QD
     Route: 048
     Dates: start: 2010

REACTIONS (1)
  - Plasma cell myeloma [Recovering/Resolving]
